FAERS Safety Report 9834070 (Version 3)
Quarter: 2014Q1

REPORT INFORMATION
  Report Type: Spontaneous
  Country: JP (occurrence: JP)
  Receive Date: 20140122
  Receipt Date: 20140201
  Transmission Date: 20141002
  Serious: Yes (Other)
  Sender: FDA-Public Use
  Company Number: JP-009507513-1401JPN008859

PATIENT
  Age: 69 Year
  Sex: Female

DRUGS (2)
  1. DECADRON PHOSPHATE INJECTION [Suspect]
     Indication: MYELOMA CAST NEPHROPATHY
     Dosage: UNK
     Dates: start: 201005, end: 201301
  2. BORTEZOMIB [Suspect]
     Indication: MYELOMA CAST NEPHROPATHY
     Dosage: UNK
     Route: 042
     Dates: start: 201005, end: 201301

REACTIONS (1)
  - Diverticular perforation [Unknown]
